FAERS Safety Report 6510285-3 (Version None)
Quarter: 2009Q4

REPORT INFORMATION
  Report Type: 
  Country: None (occurrence: None)
  Receive Date: 20091221
  Receipt Date: 20091221
  Transmission Date: 20100525
  Serious: Yes (Hospitalization)
  Sender: FDA-Public Use
  Company Number: None

PATIENT
  Age: 62 Year
  Sex: Female
  Weight: 68 kg

DRUGS (9)
  1. BACTRIM DS [Suspect]
     Dosage: 1 TABLET BID PO
     Route: 048
  2. LISINOPRIL [Suspect]
     Indication: STENOTROPHOMONAS INFECTION
     Dosage: 40 MG DAILY PO
     Route: 048
  3. CARVEDILOL [Concomitant]
  4. MULTI-VITAMINS [Concomitant]
  5. NIACIN [Concomitant]
  6. ASPIRIN [Concomitant]
  7. PRAVASTATIN [Concomitant]
  8. PREGABALIN [Concomitant]
  9. SPIRONOLACTONE [Concomitant]

REACTIONS (2)
  - HYPERKALAEMIA [None]
  - RENAL FAILURE ACUTE [None]
